FAERS Safety Report 20598855 (Version 1)
Quarter: 2022Q1

REPORT INFORMATION
  Report Type: Spontaneous
  Country: US (occurrence: US)
  Receive Date: 20220315
  Receipt Date: 20220315
  Transmission Date: 20220423
  Serious: Yes (Other)
  Sender: FDA-Public Use
  Company Number: US-009507513-2203USA004311

PATIENT
  Sex: Female

DRUGS (2)
  1. KEYTRUDA [Suspect]
     Active Substance: PEMBROLIZUMAB
     Indication: Salivary gland cancer
     Dosage: UNK
     Dates: start: 202103
  2. LENVATINIB MESYLATE [Suspect]
     Active Substance: LENVATINIB MESYLATE
     Indication: Salivary gland cancer
     Dosage: TOTAL DAILY DOSE: 24 MILLIGRAM
     Route: 048
     Dates: start: 20211113

REACTIONS (8)
  - Deafness [Unknown]
  - Pneumonia [Unknown]
  - Respiratory distress [Unknown]
  - Vision blurred [Unknown]
  - Speech disorder [Unknown]
  - Weight decreased [Unknown]
  - Vomiting [Unknown]
  - Headache [Unknown]

NARRATIVE: CASE EVENT DATE: 20210901
